FAERS Safety Report 5470901-4 (Version None)
Quarter: 2007Q3

REPORT INFORMATION
  Report Type: 
  Country: None (occurrence: None)
  Receive Date: 20070928
  Receipt Date: 20070913
  Transmission Date: 20080115
  Serious: Yes (Other)
  Sender: FDA-Public Use
  Company Number: GR-BRISTOL-MYERS SQUIBB COMPANY-13841119

PATIENT
  Sex: Female
  Weight: 1 kg

DRUGS (4)
  1. ABILIFY [Suspect]
     Indication: BIPOLAR DISORDER
     Route: 064
     Dates: start: 20061201, end: 20070501
  2. TRILEPTAL [Concomitant]
     Indication: BIPOLAR DISORDER
     Route: 064
  3. ZOLOFT [Concomitant]
     Indication: BIPOLAR DISORDER
     Route: 064
  4. VITAMINS [Concomitant]
     Route: 064

REACTIONS (3)
  - PREGNANCY [None]
  - PREMATURE BABY [None]
  - RESPIRATORY DISORDER [None]
